FAERS Safety Report 8818676 (Version 1)
Quarter: 2012Q4

REPORT INFORMATION
  Report Type: 
  Country: IT (occurrence: IT)
  Receive Date: 20121001
  Receipt Date: 20121001
  Transmission Date: 20130627
  Serious: Yes (Hospitalization)
  Sender: FDA-Public Use
  Company Number: PHHY2012IT084392

PATIENT
  Age: 79 Year
  Sex: Female

DRUGS (2)
  1. CEFTRIAXONE [Suspect]
     Indication: URINARY TRACT INFECTION
     Dosage: 1 DF, UNK
     Route: 030
     Dates: start: 20120630, end: 20120706
  2. IBUPROFEN [Suspect]
     Indication: SCIATICA
     Dosage: 1200 mg, UNK
     Route: 048
     Dates: start: 20120605, end: 20120625

REACTIONS (5)
  - Hepatitis acute [Recovering/Resolving]
  - Jaundice [Recovering/Resolving]
  - Nausea [Recovering/Resolving]
  - Vomiting [Recovering/Resolving]
  - Decreased appetite [Recovering/Resolving]
